FAERS Safety Report 18129484 (Version 1)
Quarter: 2020Q3

REPORT INFORMATION
  Report Type: Spontaneous
  Country: US (occurrence: US)
  Receive Date: 20200810
  Receipt Date: 20200810
  Transmission Date: 20201103
  Serious: Yes (Other)
  Sender: FDA-Public Use
  Company Number: None

PATIENT
  Age: 73 Year
  Sex: Female
  Weight: 68.3 kg

DRUGS (2)
  1. ALARIS LV PUMP [Suspect]
     Active Substance: DEVICE
  2. ALTEPLASE. [Suspect]
     Active Substance: ALTEPLASE

REACTIONS (2)
  - Incorrect drug administration rate [None]
  - Device failure [None]

NARRATIVE: CASE EVENT DATE: 20200802
